FAERS Safety Report 13699036 (Version 1)
Quarter: 2017Q2

REPORT INFORMATION
  Report Type: Spontaneous
  Country: US (occurrence: US)
  Receive Date: 20170628
  Receipt Date: 20170628
  Transmission Date: 20170830
  Serious: No
  Sender: FDA-Public Use
  Company Number: GXBR2017US001305

PATIENT
  Sex: Female
  Weight: 62.13 kg

DRUGS (2)
  1. SYNTHROID [Concomitant]
     Active Substance: LEVOTHYROXINE SODIUM
     Indication: THYROID DISORDER
     Dosage: 100 UG, QD
     Route: 048
  2. BIMATOPROST. [Suspect]
     Active Substance: BIMATOPROST
     Indication: GROWTH OF EYELASHES
     Dosage: APPLY NIGHTLY ONE BRUSH PER EYE DF, UNK
     Route: 065
     Dates: start: 20170307

REACTIONS (2)
  - Drug ineffective [Not Recovered/Not Resolved]
  - Eye pruritus [Recovered/Resolved]
